FAERS Safety Report 5704272-2 (Version None)
Quarter: 2008Q2

REPORT INFORMATION
  Report Type: 
  Country: None (occurrence: None)
  Receive Date: 20080414
  Receipt Date: 20080407
  Transmission Date: 20081010
  Serious: Yes (Hospitalization)
  Sender: FDA-Public Use
  Company Number: FR-AVENTIS-200811255FR

PATIENT
  Age: 28 Year
  Sex: Female

DRUGS (2)
  1. CLOMID [Suspect]
     Indication: OVULATION INDUCTION
     Route: 048
     Dates: start: 20070521, end: 20070526
  2. GONADOTROPHINE CHORIONIQUE ENDO [Suspect]
     Indication: OVULATION INDUCTION
     Route: 042
     Dates: start: 20070531, end: 20070531

REACTIONS (3)
  - DIPLOPIA [None]
  - EYE PAIN [None]
  - VITH NERVE PARALYSIS [None]
